FAERS Safety Report 6085107-8 (Version None)
Quarter: 2009Q1

REPORT INFORMATION
  Report Type: 
  Country: None (occurrence: None)
  Receive Date: 20090220
  Receipt Date: 20090211
  Transmission Date: 20090719
  Serious: Yes (Death)
  Sender: FDA-Public Use
  Company Number: HR-ABBOTT-09P-216-0501112-00

PATIENT
  Sex: Female

DRUGS (3)
  1. ZEMPLAR [Suspect]
     Indication: HYPERPARATHYROIDISM
     Dosage: ONE WEEK 10 MCG, OTHER 15 MCG
     Dates: start: 20070922
  2. ISOPTIN [Suspect]
     Indication: SUPRAVENTRICULAR TACHYCARDIA
     Dosage: 2 X 40 MILLIGRAMS PER OS
     Route: 050
  3. EPOETIN [Concomitant]
     Indication: NEPHROGENIC ANAEMIA

REACTIONS (1)
  - COLON CANCER [None]
